FAERS Safety Report 5078656-2 (Version None)
Quarter: 2006Q3

REPORT INFORMATION
  Report Type: 
  Country: None (occurrence: None)
  Receive Date: 20060810
  Receipt Date: 20060810
  Transmission Date: 20061208
  Serious: Yes (Life-Threatening, Other)
  Sender: FDA-Public Use
  Company Number: None

PATIENT
  Sex: Female
  Weight: 69.8539 kg

DRUGS (5)
  1. ORTHO TRI-CYCLEN [Suspect]
     Indication: CONTRACEPTION
     Dosage: 1 PILL PER DAY PO
     Route: 048
     Dates: start: 19971001, end: 19990801
  2. ORTHOCEPT/APRI [Suspect]
     Indication: OVARIAN CYST
     Dosage: 1 PILL PER DAY
     Dates: start: 20010901, end: 20051205
  3. ORTHOCEPT/APRI [Suspect]
     Indication: PAIN
     Dosage: 1 PILL PER DAY
     Dates: start: 20010901, end: 20051205
  4. MALARONE [Concomitant]
  5. DOXYCYCLINE [Concomitant]

REACTIONS (10)
  - ACNE [None]
  - ACNE CYSTIC [None]
  - BACK PAIN [None]
  - FATIGUE [None]
  - FLANK PAIN [None]
  - LOSS OF LIBIDO [None]
  - MENSTRUATION IRREGULAR [None]
  - PALPITATIONS [None]
  - SOCIAL PHOBIA [None]
  - WEIGHT INCREASED [None]
